FAERS Safety Report 6596067-5 (Version None)
Quarter: 2010Q1

REPORT INFORMATION
  Report Type: 
  Country: None (occurrence: None)
  Receive Date: 20100216
  Receipt Date: 20100210
  Transmission Date: 20100710
  Serious: Yes (Other)
  Sender: FDA-Public Use
  Company Number: 1000009295

PATIENT
  Age: 69 Year
  Sex: Female
  Weight: 88.4514 kg

DRUGS (5)
  1. BYSTOLIC [Suspect]
     Indication: ARRHYTHMIA
     Dosage: 5 MG (5 MG, 1 IN 1 D), ORAL
     Route: 048
     Dates: start: 20090701, end: 20090701
  2. BYSTOLIC [Suspect]
     Indication: PALPITATIONS
     Dosage: 5 MG (5 MG, 1 IN 1 D), ORAL
     Route: 048
     Dates: start: 20090701, end: 20090701
  3. BYSTOLIC [Suspect]
     Indication: ARRHYTHMIA
     Dosage: 10 MG (10 MG, 1 IN 1 D), ORAL
     Route: 048
     Dates: start: 20090701, end: 20090906
  4. BYSTOLIC [Suspect]
     Indication: PALPITATIONS
     Dosage: 10 MG (10 MG, 1 IN 1 D), ORAL
     Route: 048
     Dates: start: 20090701, end: 20090906
  5. LEVOTHYROXINE [Concomitant]

REACTIONS (2)
  - AMNESIA [None]
  - NUCLEAR MAGNETIC RESONANCE IMAGING BRAIN ABNORMAL [None]
